FAERS Safety Report 10216974 (Version 2)
Quarter: 2014Q2

REPORT INFORMATION
  Report Type: Spontaneous
  Country: JP (occurrence: JP)
  Receive Date: 20140604
  Receipt Date: 20140630
  Transmission Date: 20141212
  Serious: Yes (Hospitalization)
  Sender: FDA-Public Use
  Company Number: JP-GLAXOSMITHKLINE-B0989195A

PATIENT
  Age: 71 Year
  Sex: Female

DRUGS (3)
  1. VOTRIENT 200MG [Suspect]
     Indication: LEIOMYOSARCOMA
     Dosage: 800MG PER DAY
     Route: 048
     Dates: start: 20140325, end: 20140420
  2. JANUVIA [Concomitant]
     Indication: DIABETES MELLITUS
     Dosage: 50MG PER DAY
     Route: 048
  3. AMARYL [Concomitant]
     Indication: DIABETES MELLITUS
     Dosage: 1MG PER DAY
     Route: 048

REACTIONS (7)
  - Pancreatitis acute [Recovered/Resolved]
  - Hyperbilirubinaemia [Recovering/Resolving]
  - Platelet count decreased [Recovering/Resolving]
  - Pleural effusion [Unknown]
  - Pancreatic enlargement [Unknown]
  - Lipase increased [Unknown]
  - Amylase increased [Unknown]
